FAERS Safety Report 25671082 (Version 1)
Quarter: 2025Q3

REPORT INFORMATION
  Report Type: Spontaneous
  Country: EU (occurrence: EU)
  Receive Date: 20250812
  Receipt Date: 20250812
  Transmission Date: 20251021
  Serious: Yes (Life-Threatening, Hospitalization)
  Sender: MYLAN
  Company Number: None

PATIENT
  Age: 59 Year
  Sex: Female

DRUGS (8)
  1. CLOZAPINE [Suspect]
     Active Substance: CLOZAPINE
     Indication: Schizophrenia
     Dosage: 400 MILLIGRAM, QD (GRADUAL REINTRODUCTION UP TO 400 MG)
     Route: 048
     Dates: start: 20250626, end: 20250708
  2. CLOZAPINE [Suspect]
     Active Substance: CLOZAPINE
     Dosage: 400 MILLIGRAM, QD (GRADUAL REINTRODUCTION UP TO 400 MG)
     Dates: start: 20250626, end: 20250708
  3. CLOZAPINE [Suspect]
     Active Substance: CLOZAPINE
     Dosage: 400 MILLIGRAM, QD (GRADUAL REINTRODUCTION UP TO 400 MG)
     Dates: start: 20250626, end: 20250708
  4. CLOZAPINE [Suspect]
     Active Substance: CLOZAPINE
     Dosage: 400 MILLIGRAM, QD (GRADUAL REINTRODUCTION UP TO 400 MG)
     Route: 048
     Dates: start: 20250626, end: 20250708
  5. CLOZAPINE [Suspect]
     Active Substance: CLOZAPINE
     Route: 065
  6. CLOZAPINE [Suspect]
     Active Substance: CLOZAPINE
  7. CLOZAPINE [Suspect]
     Active Substance: CLOZAPINE
  8. CLOZAPINE [Suspect]
     Active Substance: CLOZAPINE
     Route: 065

REACTIONS (4)
  - Agranulocytosis [Recovered/Resolved]
  - Neutropenia [Recovered/Resolved]
  - Product dose omission in error [Recovered/Resolved]
  - Product prescribing error [Recovered/Resolved]

NARRATIVE: CASE EVENT DATE: 20250707
